FAERS Safety Report 10557912 (Version 8)
Quarter: 2016Q2

REPORT INFORMATION
  Report Type: Report from Study
  Country: TH (occurrence: TH)
  Receive Date: 20141031
  Receipt Date: 20160412
  Transmission Date: 20160815
  Serious: Yes (Other)
  Sender: FDA-Public Use
  Company Number: TH-MERCK-1410THA014751

PATIENT
  Age: 32 Year
  Sex: Female

DRUGS (7)
  1. MAR-PLUS [Concomitant]
     Indication: BRONCHITIS
     Dosage: 2 PUFF DAILY
     Route: 045
     Dates: start: 20141017
  2. AERON [Concomitant]
     Indication: BRONCHITIS
     Dosage: 400 MICROGRAM, QD
     Dates: start: 20141017, end: 20141024
  3. PREDNISOLONE. [Concomitant]
     Active Substance: PREDNISOLONE
     Indication: BRONCHITIS
     Dosage: 15 MG, QD
     Dates: start: 20141017, end: 20141024
  4. PUROXAN [Concomitant]
     Indication: BRONCHITIS
     Dosage: 400 MG, QD
     Dates: start: 20141017, end: 20141024
  5. PEGINTERFERON ALFA-2B [Suspect]
     Active Substance: PEGINTERFERON ALFA-2B
     Indication: CHRONIC HEPATITIS
     Dosage: 80 MICROGRAM, QW, REDIPEN
     Route: 058
     Dates: start: 20140710, end: 20141016
  6. CIPROXYL [Concomitant]
     Indication: BRONCHITIS
     Dosage: 1000MG, QD
     Dates: start: 20141017, end: 20141024
  7. ALBUTEROL. [Concomitant]
     Active Substance: ALBUTEROL
     Indication: BRONCHITIS
     Dosage: 200 MICROGRAM, QD
     Dates: start: 20141017, end: 20141024

REACTIONS (1)
  - Basedow^s disease [Not Recovered/Not Resolved]

NARRATIVE: CASE EVENT DATE: 20141024
